FAERS Safety Report 8297261-8 (Version None)
Quarter: 2012Q2

REPORT INFORMATION
  Report Type: 
  Country: None (occurrence: None)
  Receive Date: 20120416
  Receipt Date: 20120405
  Transmission Date: 20120825
  Serious: Yes (Other)
  Sender: FDA-Public Use
  Company Number: 2012SP018307

PATIENT
  Age: 24 Year
  Sex: Male
  Weight: 54 kg

DRUGS (6)
  1. PRIMPERAN TAB [Concomitant]
  2. REBETOL [Suspect]
     Indication: HEPATITIS C
     Dosage: 600 MG;QD;PO
     Route: 048
     Dates: start: 20120306, end: 20120307
  3. PEG-INTRON [Suspect]
     Indication: HEPATITIS C
     Dosage: 1.5 MCG/KG;QW;SC
     Route: 058
     Dates: start: 20120306, end: 20120306
  4. LOXONIN [Concomitant]
  5. TELAVIC (ANTIVIRALS NOS) [Suspect]
     Indication: HEPATITIS C
     Dosage: 2250 MG;QD;PO
     Route: 048
     Dates: start: 20120306, end: 20120307
  6. MUCOSTA [Concomitant]

REACTIONS (3)
  - VOMITING [None]
  - SINUS BRADYCARDIA [None]
  - ATRIOVENTRICULAR BLOCK SECOND DEGREE [None]
